FAERS Safety Report 4618741-X (Version None)
Quarter: 2005Q1

REPORT INFORMATION
  Report Type: 
  Country: None (occurrence: None)
  Receive Date: 20050323
  Receipt Date: 20050308
  Transmission Date: 20050727
  Serious: Yes (Hospitalization)
  Sender: FDA-Public Use
  Company Number: 2005BI002659

PATIENT
  Age: 45 Year
  Sex: Female

DRUGS (4)
  1. AVONEX [Suspect]
     Indication: MULTIPLE SCLEROSIS
     Dosage: 30 UG; QW; IM
     Route: 030
     Dates: start: 20010601
  2. CYCLOBENZAPRINE HCL [Concomitant]
  3. VICODIN [Concomitant]
  4. EFFEXOR XR [Concomitant]

REACTIONS (1)
  - OVERDOSE [None]
